FAERS Safety Report 7345617-X (Version None)
Quarter: 2011Q1

REPORT INFORMATION
  Report Type: 
  Country: None (occurrence: None)
  Receive Date: 20110310
  Receipt Date: 20110308
  Transmission Date: 20110831
  Serious: Yes (Congenital Anomaly)
  Sender: FDA-Public Use
  Company Number: A0905286A

PATIENT
  Sex: Male
  Weight: 3.2 kg

DRUGS (2)
  1. VIREAD [Suspect]
     Indication: HIV INFECTION
     Dosage: 300MGD PER DAY
     Route: 064
  2. TRIZIVIR [Suspect]
     Indication: HIV INFECTION
     Dosage: 2TAB PER DAY
     Route: 064

REACTIONS (4)
  - HEART DISEASE CONGENITAL [None]
  - LUNG DISORDER [None]
  - DRUG EXPOSURE DURING PREGNANCY [None]
  - CARDIOMEGALY [None]
